FAERS Safety Report 23352254 (Version 1)
Quarter: 2023Q4

REPORT INFORMATION
  Report Type: Spontaneous
  Country: BR (occurrence: BR)
  Receive Date: 20231229
  Receipt Date: 20231229
  Transmission Date: 20240109
  Serious: Yes (Death)
  Sender: FDA-Public Use
  Company Number: BR-DSJP-DSE-2023-153831

PATIENT
  Age: 69 Year
  Sex: Female

DRUGS (2)
  1. EDOXABAN TOSYLATE [Suspect]
     Active Substance: EDOXABAN TOSYLATE
     Indication: Tumour thrombosis
     Dosage: 60 MG, DAILY (USED FOR APPROXIMATELY 4 MONTHS)
     Route: 048
     Dates: end: 202309
  2. ERDAFITINIB [Concomitant]
     Active Substance: ERDAFITINIB
     Indication: Neoplasm malignant
     Dosage: 4MG AND 5MG ? USED 1 TABLET OF 4MG, THEN STARTED TAKING 1 TABLET OF 4MG AND 1 TABLET OF 5MG, TOTALIN
     Route: 048
     Dates: end: 202309

REACTIONS (3)
  - Death [Fatal]
  - Bladder cancer [Fatal]
  - Hepatic neoplasm [Fatal]

NARRATIVE: CASE EVENT DATE: 20230601
